FAERS Safety Report 8302275 (Version 4)
Quarter: 2013Q1

REPORT INFORMATION
  Report Type: Spontaneous
  Country: US (occurrence: US)
  Receive Date: 20111220
  Receipt Date: 20130226
  Transmission Date: 20140127
  Serious: Yes (Other)
  Sender: FDA-Public Use
  Company Number: US-PFIZER INC-2011306839

PATIENT
  Age: 67 Year
  Sex: Female
  Weight: 79 kg

DRUGS (3)
  1. LEVOXYL [Suspect]
     Indication: HYPOTHYROIDISM
     Dosage: 50 UG, UNK
  2. LEVOXYL [Suspect]
     Dosage: 100 UG, DAILY
  3. SYNTHROID [Suspect]
     Indication: HYPOTHYROIDISM
     Dosage: UNK

REACTIONS (16)
  - Confusional state [Unknown]
  - Memory impairment [Not Recovered/Not Resolved]
  - Thyroxine increased [Recovered/Resolved]
  - Tri-iodothyronine decreased [Recovered/Resolved]
  - Weight increased [Unknown]
  - Dry skin [Not Recovered/Not Resolved]
  - Mood altered [Not Recovered/Not Resolved]
  - Onychoclasis [Not Recovered/Not Resolved]
  - Insomnia [Not Recovered/Not Resolved]
  - Constipation [Not Recovered/Not Resolved]
  - Disturbance in attention [Not Recovered/Not Resolved]
  - Weight loss poor [Not Recovered/Not Resolved]
  - Alopecia [Not Recovered/Not Resolved]
  - Nasopharyngitis [Not Recovered/Not Resolved]
  - Respiratory tract congestion [Not Recovered/Not Resolved]
  - Reaction to drug excipients [Unknown]
